FAERS Safety Report 14123916 (Version 2)
Quarter: 2017Q4

REPORT INFORMATION
  Report Type: Report from Study
  Country: US (occurrence: US)
  Receive Date: 20171025
  Receipt Date: 20171121
  Transmission Date: 20180321
  Serious: Yes (Hospitalization, Other)
  Sender: FDA-Public Use
  Company Number: US-BAYER-2017-160240

PATIENT
  Age: 56 Year
  Sex: Male

DRUGS (3)
  1. STIVARGA [Suspect]
     Active Substance: REGORAFENIB
     Indication: COLORECTAL CANCER METASTATIC
     Dosage: 80 MG, QD
     Route: 048
     Dates: start: 20170816, end: 20170821
  2. STIVARGA [Suspect]
     Active Substance: REGORAFENIB
     Indication: COLORECTAL CANCER METASTATIC
     Dosage: 80 MG, ONCE DAILY
     Route: 048
     Dates: start: 20171006, end: 201710
  3. STIVARGA [Suspect]
     Active Substance: REGORAFENIB
     Indication: COLORECTAL CANCER METASTATIC
     Dosage: 120 MG, ONCE DAILY
     Route: 048
     Dates: start: 20170822, end: 20170922

REACTIONS (13)
  - Hypotension [None]
  - Hypotension [Recovering/Resolving]
  - Anaemia [Recovering/Resolving]
  - Oedema peripheral [None]
  - Paraesthesia [Not Recovered/Not Resolved]
  - Asthenia [Recovering/Resolving]
  - Anaemia [Recovered/Resolved]
  - Dysphonia [Recovering/Resolving]
  - Off label use [None]
  - Dyspnoea [None]
  - Dizziness [None]
  - Somnolence [None]
  - Rash [None]

NARRATIVE: CASE EVENT DATE: 201708
